FAERS Safety Report 4303340-X (Version None)
Quarter: 2004Q1

REPORT INFORMATION
  Report Type: 
  Country: None (occurrence: None)
  Receive Date: 20040223
  Receipt Date: 20040209
  Transmission Date: 20041129
  Serious: Yes (Hospitalization)
  Sender: FDA-Public Use
  Company Number: JP-JNJFOC-20040104296

PATIENT
  Age: 77 Year
  Sex: Female
  Weight: 39 kg

DRUGS (16)
  1. REMICADE [Suspect]
     Indication: RHEUMATOID ARTHRITIS
     Dosage: 3 MG/KG, 1 IN 1 AS NECESSARY, INTRAVENOUS DRIP
     Route: 041
     Dates: start: 20031105, end: 20031105
  2. REMICADE [Suspect]
     Indication: RHEUMATOID ARTHRITIS
     Dosage: 3 MG/KG, 1 IN 1 AS NECESSARY, INTRAVENOUS DRIP
     Route: 041
     Dates: start: 20031119, end: 20031119
  3. INFLUENZA VACCINE (INFLUENZA VACCINE) INJECTION [Suspect]
     Indication: IMMUNISATION
     Dosage: 0.5 DOSE (S), 1 IN 1 AS NECESSARY, SUBCUTANEOUS
     Route: 058
     Dates: start: 20031128
  4. PREDNISOLONE [Concomitant]
  5. RHEUMATREX (METHOTREXATE SODIUM) TABLETS [Concomitant]
  6. PREDNISOLONE [Concomitant]
  7. INFREE S (INDOMETACIN) TABLETS) [Concomitant]
  8. LEUCOVORIN (FOLINIC ACID) TABLETS [Concomitant]
  9. TAKEPRON (LANSOPRAZOLE) TABLETS [Concomitant]
  10. CYTOTEC (MISOPROSTOL) TABLETS [Concomitant]
  11. GLAKAY (MENATETRENONE) CAPSULES [Concomitant]
  12. DEPROMEL (FLUVOXAMINE) TABLETS [Concomitant]
  13. DORAL [Concomitant]
  14. LASIX [Concomitant]
  15. METHYCOBAL (MECOBALAMIN) TABLETS [Concomitant]
  16. ALDACTONE A (SPIRONOLACTONE) TABLETS [Concomitant]

REACTIONS (16)
  - ACID FAST BACILLI INFECTION [None]
  - ANAEMIA [None]
  - ARTHRALGIA [None]
  - ASTHMA [None]
  - CONTUSION [None]
  - DISSEMINATED TUBERCULOSIS [None]
  - DRUG INTERACTION [None]
  - FALL [None]
  - FEELING HOT [None]
  - FEMUR FRACTURE [None]
  - GASTRIC ULCER [None]
  - HEAD INJURY [None]
  - INTERSTITIAL LUNG DISEASE [None]
  - MYCOBACTERIUM AVIUM COMPLEX INFECTION [None]
  - PNEUMONIA [None]
  - TREATMENT NONCOMPLIANCE [None]
